FAERS Safety Report 7951935-4 (Version None)
Quarter: 2011Q4

REPORT INFORMATION
  Report Type: 
  Country: None (occurrence: None)
  Receive Date: 20111201
  Receipt Date: 20111124
  Transmission Date: 20120403
  Serious: Yes (Death, Other)
  Sender: FDA-Public Use
  Company Number: MX-SANOFI-AVENTIS-2011SA032299

PATIENT
  Age: 82 Year
  Sex: Male
  Weight: 77 kg

DRUGS (5)
  1. ANTIHYPERTENSIVES [Concomitant]
     Dates: start: 20110606
  2. LANTUS [Suspect]
     Indication: DIABETES MELLITUS
     Route: 058
     Dates: start: 20090101, end: 20101001
  3. SOLOSTAR [Suspect]
     Indication: DIABETES MELLITUS
     Dates: start: 20101001, end: 20110101
  4. LANTUS [Suspect]
     Dosage: 20 IU IN THE MORNING AND 20 IU IN THE MIDDLE DAY
     Route: 058
     Dates: start: 20110101, end: 20110606
  5. LANTUS [Suspect]
     Indication: DIABETES MELLITUS
     Dosage: DOSE: 20 IU IN THE MORNING AND 25 IU AT NIGHT
     Route: 058
     Dates: start: 20101001, end: 20110101

REACTIONS (3)
  - HYPERGLYCAEMIA [None]
  - CEREBROVASCULAR ACCIDENT [None]
  - DRUG ADMINISTRATION ERROR [None]
